FAERS Safety Report 19317368 (Version 2)
Quarter: 2021Q2

REPORT INFORMATION
  Report Type: Spontaneous
  Country: CN (occurrence: CN)
  Receive Date: 20210527
  Receipt Date: 20210603
  Transmission Date: 20210717
  Serious: Yes (Other)
  Sender: FDA-Public Use
  Company Number: CN-ROCHE-2834140

PATIENT
  Age: 65 Year
  Sex: Female

DRUGS (4)
  1. METHOTREXATE. [Concomitant]
     Active Substance: METHOTREXATE
     Indication: CENTRAL NERVOUS SYSTEM LYMPHOMA
     Dosage: FIRST 2 G/M2 ON DAY 1, 3 G/M2 ON DAY 1 SINCE THE SECOND CYCLE, FOR 6 CYCLES
     Route: 065
  2. CALCIUM FOLINATE [Concomitant]
     Active Substance: LEUCOVORIN CALCIUM
     Indication: CENTRAL NERVOUS SYSTEM LYMPHOMA
     Dosage: FOR 6 CYCLES
  3. LENALIDOMIDE [Concomitant]
     Active Substance: LENALIDOMIDE
     Indication: CENTRAL NERVOUS SYSTEM LYMPHOMA
     Dosage: PER DAY FOR 14 DAYS EVERY 28 DAYS
     Route: 048
  4. MABTHERA [Suspect]
     Active Substance: RITUXIMAB
     Indication: CENTRAL NERVOUS SYSTEM LYMPHOMA
     Dosage: ON DAY 1, FOR 6 CYCLES
     Route: 065

REACTIONS (2)
  - Mucosal disorder [Unknown]
  - Drug-induced liver injury [Unknown]
